FAERS Safety Report 5805590-X (Version None)
Quarter: 2008Q3

REPORT INFORMATION
  Report Type: 
  Country: None (occurrence: None)
  Receive Date: 20080708
  Receipt Date: 20080708
  Transmission Date: 20090109
  Serious: Yes (Death)
  Sender: FDA-Public Use
  Company Number: None

PATIENT
  Age: 56 Year
  Sex: Male
  Weight: 81.6475 kg

DRUGS (1)
  1. METHYLPHENIDATE 20MG DANBURY [Suspect]
     Indication: ATTENTION DEFICIT/HYPERACTIVITY DISORDER
     Dosage: 1 TABLET DAILY IN MORNING PO, MANY YEARS, TOTAL UNKNOWN
     Route: 048

REACTIONS (5)
  - ANOXIC ENCEPHALOPATHY [None]
  - BLOOD CHOLESTEROL INCREASED [None]
  - CEREBROVASCULAR ACCIDENT [None]
  - COMA [None]
  - UNEVALUABLE EVENT [None]
